FAERS Safety Report 18037212 (Version 1)
Quarter: 2020Q3

REPORT INFORMATION
  Report Type: Spontaneous
  Country: US (occurrence: US)
  Receive Date: 20200717
  Receipt Date: 20200717
  Transmission Date: 20201103
  Serious: No
  Sender: FDA-Public Use
  Company Number: US-AMGEN-USASP2020113778

PATIENT
  Age: 58 Year
  Sex: Female

DRUGS (16)
  1. LOSARTAN POTASSIUM. [Concomitant]
     Active Substance: LOSARTAN POTASSIUM
  2. METOPROLOL. [Concomitant]
     Active Substance: METOPROLOL
  3. POTASSIUM [Concomitant]
     Active Substance: POTASSIUM
  4. OTEZLA [Suspect]
     Active Substance: APREMILAST
     Indication: PSORIASIS
     Dosage: 30 MILLIGRAM, BID
     Route: 048
     Dates: start: 20170802
  5. PRAVASTATIN. [Concomitant]
     Active Substance: PRAVASTATIN
  6. TRAMADOL. [Concomitant]
     Active Substance: TRAMADOL
  7. XELJANZ [Concomitant]
     Active Substance: TOFACITINIB CITRATE
  8. LASIX [Concomitant]
     Active Substance: FUROSEMIDE
  9. DULCOLAX (BISACODYL) [Concomitant]
     Active Substance: BISACODYL
  10. LORATADINE. [Concomitant]
     Active Substance: LORATADINE
  11. CYCLOBENZAPRIN [Concomitant]
     Active Substance: CYCLOBENZAPRINE
  12. PANTOPRAZOLE [Concomitant]
     Active Substance: PANTOPRAZOLE
  13. VITAMIN D3 [Concomitant]
     Active Substance: CHOLECALCIFEROL
  14. XANAX [Concomitant]
     Active Substance: ALPRAZOLAM
  15. FISH OIL [Concomitant]
     Active Substance: FISH OIL
  16. LATUDA [Concomitant]
     Active Substance: LURASIDONE HYDROCHLORIDE

REACTIONS (1)
  - Bronchitis [Not Recovered/Not Resolved]

NARRATIVE: CASE EVENT DATE: 20200620
